FAERS Safety Report 5304902-3 (Version None)
Quarter: 2007Q2

REPORT INFORMATION
  Report Type: 
  Country: None (occurrence: None)
  Receive Date: 20070423
  Receipt Date: 20070412
  Transmission Date: 20071010
  Serious: Yes (Other)
  Sender: FDA-Public Use
  Company Number: FR-PFIZER INC-2007029873

PATIENT
  Age: 45 Year
  Sex: Female

DRUGS (2)
  1. CHAMPIX [Suspect]
  2. CHAMPIX [Suspect]
     Dosage: DAILY DOSE:2MG

REACTIONS (2)
  - ABDOMINAL PAIN UPPER [None]
  - CHEST PAIN [None]
